FAERS Safety Report 10167731 (Version 1)
Quarter: 2014Q2

REPORT INFORMATION
  Report Type: Spontaneous
  Country: US (occurrence: None)
  Receive Date: 20140508
  Receipt Date: 20140508
  Transmission Date: 20141212
  Serious: Yes (Hospitalization)
  Sender: FDA-Public Use
  Company Number: UTC-048114

PATIENT
  Age: 73 Year
  Sex: Male

DRUGS (2)
  1. TYVASO (0.6 MILLIGRAM/MILLILITERS, AEROSOL FOR INHALATION) (TREPROSTINIL SODIUM) [Suspect]
     Indication: PULMONARY ARTERIAL HYPERTENSION
     Dosage: 4 IN 1 D?
     Route: 055
     Dates: start: 20140317
  2. WARFARIN (WARFARIN)(UNKNOWN) [Concomitant]

REACTIONS (2)
  - Ulcer haemorrhage [None]
  - Gastritis [None]
